FAERS Safety Report 5618329-8 (Version None)
Quarter: 2008Q1

REPORT INFORMATION
  Report Type: 
  Country: None (occurrence: None)
  Receive Date: 20080207
  Receipt Date: 20080128
  Transmission Date: 20080703
  Serious: Yes (Other)
  Sender: FDA-Public Use
  Company Number: US-BAYER-200810450BCC

PATIENT
  Age: 63 Year
  Sex: Female
  Weight: 94 kg

DRUGS (6)
  1. ASPIRIN [Suspect]
     Indication: HEADACHE
     Dosage: TOTAL DAILY DOSE: 325 MG  UNIT DOSE: 325 MG
     Route: 048
     Dates: start: 20080125, end: 20080126
  2. ASPIRIN [Suspect]
     Indication: PROPHYLAXIS
     Dosage: TOTAL DAILY DOSE: 81 MG  UNIT DOSE: 81 MG
     Route: 048
     Dates: start: 20080125, end: 20080126
  3. VITAMIN TAB [Concomitant]
  4. CLARITIN [Concomitant]
  5. CALCIUM SUPPLEMENT [Concomitant]
  6. GLUCOSAMINE [Concomitant]

REACTIONS (1)
  - HAEMATOCHEZIA [None]
